FAERS Safety Report 21568094 (Version 1)
Quarter: 2022Q4

REPORT INFORMATION
  Report Type: Spontaneous
  Country: US (occurrence: None)
  Receive Date: 20221107
  Receipt Date: 20221107
  Transmission Date: 20230113
  Serious: Yes (Hospitalization)
  Sender: FDA-Public Use
  Company Number: None

PATIENT
  Age: 76 Year
  Sex: Male
  Weight: 111.13 kg

DRUGS (2)
  1. APIXABAN [Suspect]
     Active Substance: APIXABAN
     Indication: Stent placement
     Dosage: FREQUENCY : TWICE A DAY;?
     Route: 048
  2. PLAVIX [Suspect]
     Active Substance: CLOPIDOGREL BISULFATE

REACTIONS (4)
  - Haemorrhage intracranial [None]
  - Fall [None]
  - Asthenia [None]
  - Haemorrhage [None]

NARRATIVE: CASE EVENT DATE: 20220721
